FAERS Safety Report 10416008 (Version 2)
Quarter: 2014Q3

REPORT INFORMATION
  Report Type: Spontaneous
  Country: US (occurrence: US)
  Receive Date: 20140828
  Receipt Date: 20140828
  Transmission Date: 20150326
  Serious: Yes (Hospitalization, Other)
  Sender: FDA-Public Use
  Company Number: US-009507513-2009-196599-NL

PATIENT
  Sex: Female
  Weight: 54 kg

DRUGS (5)
  1. TYLENOL [Concomitant]
     Active Substance: ACETAMINOPHEN
     Dosage: FREQUENCY: PRN
  2. MOTRIN [Concomitant]
     Active Substance: IBUPROFEN
     Dosage: FREQUENCY: PRN
  3. ADVIL [Concomitant]
     Active Substance: IBUPROFEN
     Dosage: FREQUENCY: PRN
  4. NUVARING [Suspect]
     Active Substance: ETHINYL ESTRADIOL\ETONOGESTREL
     Indication: CONTRACEPTION
     Dosage: CONTINUING: NO
     Route: 067
     Dates: start: 20060121, end: 20060418
  5. NUVARING [Suspect]
     Active Substance: ETHINYL ESTRADIOL\ETONOGESTREL
     Indication: METRORRHAGIA

REACTIONS (4)
  - Pulmonary embolism [Recovering/Resolving]
  - Off label use [Unknown]
  - Pulmonary infarction [Recovering/Resolving]
  - Thyroid neoplasm [Unknown]

NARRATIVE: CASE EVENT DATE: 20060418
